FAERS Safety Report 8154331-2 (Version None)
Quarter: 2012Q1

REPORT INFORMATION
  Report Type: 
  Country: None (occurrence: None)
  Receive Date: 20120221
  Receipt Date: 20120214
  Transmission Date: 20120608
  Serious: Yes (Death, Life-Threatening, Hospitalization, Other)
  Sender: FDA-Public Use
  Company Number: DE-ACTELION-A-US2009-26674

PATIENT
  Sex: Female

DRUGS (10)
  1. VENTAVIS [Suspect]
     Indication: PULMONARY ARTERIAL HYPERTENSION
     Dosage: 5 MCG X 9 DAILY
     Route: 055
     Dates: start: 20080701, end: 20090601
  2. REVATIO [Concomitant]
  3. MAGNESIUM [Concomitant]
  4. ALDACTONE [Concomitant]
  5. MARCUMAR [Concomitant]
  6. ENOXAPARIN SODIUM [Concomitant]
  7. TORSEMIDE [Concomitant]
  8. CALCIUM CHANNEL BLOCKERS [Concomitant]
  9. VENTAVIS [Suspect]
     Dosage: UNK
     Route: 055
     Dates: start: 20070918, end: 20090601
  10. TRACLEER [Concomitant]
     Indication: PULMONARY ARTERIAL HYPERTENSION
     Dosage: UNK
     Route: 048
     Dates: start: 20070101, end: 20100203

REACTIONS (14)
  - RIGHT VENTRICULAR FAILURE [None]
  - METABOLIC ACIDOSIS [None]
  - VENTRICULAR SEPTAL DEFECT [None]
  - RENAL FAILURE ACUTE [None]
  - BLOOD PRESSURE DECREASED [None]
  - CYANOSIS [None]
  - PULMONARY ARTERIAL HYPERTENSION [None]
  - LIVER FUNCTION TEST ABNORMAL [None]
  - CONDITION AGGRAVATED [None]
  - GENERAL PHYSICAL HEALTH DETERIORATION [None]
  - DISEASE PROGRESSION [None]
  - GASTRITIS [None]
  - DYSPNOEA [None]
  - NASOPHARYNGITIS [None]
